FAERS Safety Report 21002401 (Version 2)
Quarter: 2022Q3

REPORT INFORMATION
  Report Type: Spontaneous
  Country: IT (occurrence: IT)
  Receive Date: 20220624
  Receipt Date: 20220718
  Transmission Date: 20221027
  Serious: Yes (Other)
  Sender: FDA-Public Use
  Company Number: IT-CELLTRION INC.-2022IT010004

PATIENT

DRUGS (9)
  1. INFLIXIMAB [Suspect]
     Active Substance: INFLIXIMAB
     Indication: Psoriatic arthropathy
     Dosage: UNK, UNKNOWN
     Route: 065
  2. METHOTREXATE SODIUM [Suspect]
     Active Substance: METHOTREXATE SODIUM
     Indication: Psoriatic arthropathy
     Dosage: 5-10 MG/WEEK
     Route: 058
  3. METHOTREXATE SODIUM [Suspect]
     Active Substance: METHOTREXATE SODIUM
     Indication: Immunosuppressant drug therapy
     Dosage: 10 MG, QD (5-10 MG)
     Route: 065
  4. METHOTREXATE SODIUM [Suspect]
     Active Substance: METHOTREXATE SODIUM
     Dosage: 5-10 MG/DAY
  5. TOFACITINIB [Concomitant]
     Active Substance: TOFACITINIB
     Indication: Product used for unknown indication
     Dosage: UNK
     Route: 065
  6. METHOTREXATE [Concomitant]
     Active Substance: METHOTREXATE
     Indication: Immunosuppressant drug therapy
     Dosage: 5-10 MG/DAY
  7. METHOTREXATE [Concomitant]
     Active Substance: METHOTREXATE
     Dosage: 10 MG QD (5-10 MG)
     Route: 065
  8. SULFASALAZINE [Concomitant]
     Active Substance: SULFASALAZINE
     Indication: Psoriatic arthropathy
     Dosage: 3G/DAY
     Route: 048
  9. SULFASALAZINE [Concomitant]
     Active Substance: SULFASALAZINE
     Indication: Immunosuppressant drug therapy
     Dosage: 3 G, QD
     Route: 065

REACTIONS (1)
  - Kaposi^s sarcoma [Recovered/Resolved]
